FAERS Safety Report 8215582-1 (Version None)
Quarter: 2012Q1

REPORT INFORMATION
  Report Type: 
  Country: None (occurrence: None)
  Receive Date: 20120316
  Receipt Date: 20120302
  Transmission Date: 20120608
  Serious: Yes (Other)
  Sender: FDA-Public Use
  Company Number: US-ROCHE-1045825

PATIENT
  Sex: Male

DRUGS (3)
  1. PEGINTERFERON ALFA-2A [Suspect]
     Indication: HEPATITIS C
     Dates: start: 20120127, end: 20120220
  2. COPEGUS [Suspect]
     Indication: HEPATITIS C
     Dates: start: 20120127, end: 20120220
  3. BOCEPREVIR [Suspect]
     Indication: HEPATITIS C
     Dates: start: 20120210, end: 20120220

REACTIONS (5)
  - DEPRESSION [None]
  - LOWER RESPIRATORY TRACT INFECTION [None]
  - VOMITING [None]
  - CONFUSIONAL STATE [None]
  - IRRITABILITY [None]
